FAERS Safety Report 18602897 (Version 1)
Quarter: 2020Q4

REPORT INFORMATION
  Report Type: Spontaneous
  Country: US (occurrence: US)
  Receive Date: 20201210
  Receipt Date: 20201210
  Transmission Date: 20210114
  Serious: No
  Sender: FDA-Public Use
  Company Number: US-PERRIGO-20US014895

PATIENT
  Sex: Female

DRUGS (2)
  1. ALBUTEROL SULFATE. [Suspect]
     Active Substance: ALBUTEROL SULFATE
     Dosage: UNKNOWN, 1 TO 2 TIMES DAILY PRN
     Route: 055
     Dates: start: 20201012, end: 20201014
  2. ALBUTEROL SULFATE. [Suspect]
     Active Substance: ALBUTEROL SULFATE
     Indication: BRONCHIECTASIS
     Dosage: 180 MCG, 1 TO 2 TIMES DAILY PRN
     Route: 055
     Dates: start: 20200903, end: 20201011

REACTIONS (3)
  - Off label use [Recovered/Resolved]
  - Device delivery system issue [Unknown]
  - Underdose [Recovered/Resolved]

NARRATIVE: CASE EVENT DATE: 20200903
